FAERS Safety Report 6433068-1 (Version None)
Quarter: 2009Q4

REPORT INFORMATION
  Report Type: 
  Country: None (occurrence: None)
  Receive Date: 20091105
  Receipt Date: 20091030
  Transmission Date: 20100525
  Serious: Yes (Death, Hospitalization)
  Sender: FDA-Public Use
  Company Number: ENTC2009-0320

PATIENT
  Age: 70 Year
  Sex: Male

DRUGS (4)
  1. STALEVO 100 [Suspect]
     Indication: PARKINSON'S DISEASE
     Dosage: 50/12.5/200 MG, 3 TABLETS DAILY, ORAL
     Route: 048
     Dates: start: 20070601, end: 20090913
  2. LEVODOPA [Concomitant]
  3. SIFROL [Concomitant]
  4. PROPRANOLOL [Concomitant]

REACTIONS (2)
  - GASTRITIS [None]
  - MYOCARDIAL INFARCTION [None]
